FAERS Safety Report 15768255 (Version 1)
Quarter: 2018Q4

REPORT INFORMATION
  Report Type: Spontaneous
  Country: RU (occurrence: RU)
  Receive Date: 20181227
  Receipt Date: 20181227
  Transmission Date: 20190205
  Serious: Yes (Hospitalization, Other)
  Sender: FDA-Public Use
  Company Number: RU-PFIZER INC-2018513580

PATIENT
  Age: 41 Year
  Sex: Male

DRUGS (4)
  1. JAQINUS [Suspect]
     Active Substance: TOFACITINIB CITRATE
     Dosage: 10 MG, DAILY
     Route: 048
     Dates: start: 201501, end: 201802
  2. PREDNISOLONE. [Concomitant]
     Active Substance: PREDNISOLONE
     Dosage: 10 MG, UNK
     Route: 048
  3. JAQINUS [Suspect]
     Active Substance: TOFACITINIB CITRATE
     Indication: RHEUMATOID ARTHRITIS
     Dosage: 10 MG, 1X/DAY NON-REGULAR
     Route: 048
     Dates: start: 201411, end: 201501
  4. PREDNISOLONE. [Concomitant]
     Active Substance: PREDNISOLONE
     Dosage: 20 MG, DAILY

REACTIONS (1)
  - Gastric ulcer [Recovering/Resolving]

NARRATIVE: CASE EVENT DATE: 20181211
